FAERS Safety Report 7664598-2 (Version None)
Quarter: 2011Q3

REPORT INFORMATION
  Report Type: 
  Country: None (occurrence: None)
  Receive Date: 20110806
  Receipt Date: 20110105
  Transmission Date: 20111222
  Serious: No
  Sender: FDA-Public Use
  Company Number: US-ABBOTT-11P-163-0695561-00

PATIENT
  Sex: Male
  Weight: 81.72 kg

DRUGS (2)
  1. LISINOPRIL [Concomitant]
     Indication: ATRIAL FIBRILLATION
     Dates: start: 20101201
  2. NIASPAN [Suspect]
     Indication: BLOOD CHOLESTEROL INCREASED
     Dates: start: 20100401

REACTIONS (1)
  - PROTEINURIA [None]
